FAERS Safety Report 26001941 (Version 1)
Quarter: 2025Q4

REPORT INFORMATION
  Report Type: Spontaneous
  Country: EU (occurrence: EU)
  Receive Date: 20251105
  Receipt Date: 20251105
  Transmission Date: 20260117
  Serious: Yes (Other)
  Sender: MYLAN
  Company Number: None

PATIENT
  Age: 63 Year
  Sex: Female
  Weight: 66 kg

DRUGS (12)
  1. PACLITAXEL [Suspect]
     Active Substance: PACLITAXEL
     Indication: Lung neoplasm malignant
     Dosage: 360 MILLIGRAM, 1 CYCLICAL
     Dates: start: 20250902, end: 20250923
  2. PACLITAXEL [Suspect]
     Active Substance: PACLITAXEL
     Dosage: 360 MILLIGRAM, 1 CYCLICAL
     Route: 042
     Dates: start: 20250902, end: 20250923
  3. PACLITAXEL [Suspect]
     Active Substance: PACLITAXEL
     Dosage: 360 MILLIGRAM, 1 CYCLICAL
     Route: 042
     Dates: start: 20250902, end: 20250923
  4. PACLITAXEL [Suspect]
     Active Substance: PACLITAXEL
     Dosage: 360 MILLIGRAM, 1 CYCLICAL
     Dates: start: 20250902, end: 20250923
  5. CARBOPLATIN [Suspect]
     Active Substance: CARBOPLATIN
     Indication: Lung neoplasm malignant
     Dosage: 550 MILLIGRAM
     Dates: start: 20250902, end: 20250923
  6. CARBOPLATIN [Suspect]
     Active Substance: CARBOPLATIN
     Dosage: 550 MILLIGRAM
     Route: 065
     Dates: start: 20250902, end: 20250923
  7. CARBOPLATIN [Suspect]
     Active Substance: CARBOPLATIN
     Dosage: 550 MILLIGRAM
     Route: 065
     Dates: start: 20250902, end: 20250923
  8. CARBOPLATIN [Suspect]
     Active Substance: CARBOPLATIN
     Dosage: 550 MILLIGRAM
     Dates: start: 20250902, end: 20250923
  9. KEYTRUDA [Suspect]
     Active Substance: PEMBROLIZUMAB
     Indication: Lung neoplasm malignant
     Dosage: 200 MILLIGRAM, 1 CYCLICAL
     Dates: start: 20250902, end: 20250923
  10. KEYTRUDA [Suspect]
     Active Substance: PEMBROLIZUMAB
     Dosage: 200 MILLIGRAM, 1 CYCLICAL
     Route: 042
     Dates: start: 20250902, end: 20250923
  11. KEYTRUDA [Suspect]
     Active Substance: PEMBROLIZUMAB
     Dosage: 200 MILLIGRAM, 1 CYCLICAL
     Route: 042
     Dates: start: 20250902, end: 20250923
  12. KEYTRUDA [Suspect]
     Active Substance: PEMBROLIZUMAB
     Dosage: 200 MILLIGRAM, 1 CYCLICAL
     Dates: start: 20250902, end: 20250923

REACTIONS (1)
  - Cholestasis [Unknown]

NARRATIVE: CASE EVENT DATE: 20251013
